FAERS Safety Report 9782008 (Version 2)
Quarter: 2014Q1

REPORT INFORMATION
  Report Type: Spontaneous
  Country: TR (occurrence: TR)
  Receive Date: 20131225
  Receipt Date: 20140110
  Transmission Date: 20141002
  Serious: Yes (Life-Threatening)
  Sender: FDA-Public Use
  Company Number: TR-009507513-1312TUR009310

PATIENT
  Age: 18 Year
  Sex: Male
  Weight: 70 kg

DRUGS (1)
  1. PROSCAR [Suspect]
     Indication: ANDROGENETIC ALOPECIA
     Dosage: DIVIDING INTO 4 EQUAL PIECES, TWICE DAILY (ONE PIECE IN THE MORNING , ONE IN THE EVENING)
     Route: 048
     Dates: start: 20130201, end: 20130530

REACTIONS (1)
  - Memory impairment [Not Recovered/Not Resolved]
